FAERS Safety Report 8131991-3 (Version None)
Quarter: 2012Q1

REPORT INFORMATION
  Report Type: 
  Country: None (occurrence: None)
  Receive Date: 20120213
  Receipt Date: 20120206
  Transmission Date: 20120608
  Serious: Yes (Death, Life-Threatening, Other)
  Sender: FDA-Public Use
  Company Number: JP-CELGENEUS-087-50794-11091396

PATIENT
  Sex: Male
  Weight: 59 kg

DRUGS (21)
  1. LASIX [Concomitant]
     Route: 065
  2. TARGOCID [Concomitant]
     Route: 065
     Dates: start: 20110606
  3. ITRACONAZOLE [Concomitant]
     Route: 065
     Dates: start: 20110607
  4. REVLIMID [Concomitant]
     Route: 048
     Dates: start: 20110803, end: 20110810
  5. MINOCYCLINE HCL [Concomitant]
     Route: 065
  6. STEROIDS [Concomitant]
     Route: 065
  7. AMARYL [Concomitant]
     Route: 065
  8. VIDAZA [Suspect]
     Dosage: 75 MILLIGRAM/SQ. METER
     Route: 041
     Dates: start: 20110521, end: 20110528
  9. CARVEDILOL [Concomitant]
     Route: 065
  10. ALDACTONE [Concomitant]
     Route: 065
  11. ACETAMINOPHEN [Concomitant]
     Route: 065
  12. VANCOMYCIN HYDROCHLORIDE [Concomitant]
     Route: 065
     Dates: start: 20110523
  13. SULFAMETHOXAZOLE [Concomitant]
     Route: 065
  14. ZOFRAN [Concomitant]
     Route: 065
  15. RECOMODULIN [Concomitant]
     Route: 065
     Dates: start: 20110608
  16. VIDAZA [Suspect]
     Dosage: 37.5 MILLIGRAM/SQ. METER
     Route: 041
     Dates: start: 20110715, end: 20110722
  17. LOXONIN [Concomitant]
     Route: 065
  18. CIPROFLOXACIN [Concomitant]
     Route: 065
     Dates: start: 20110523
  19. AMBISOME [Concomitant]
     Route: 065
     Dates: start: 20110604
  20. DORIPENEM MONOHYDRATE [Concomitant]
     Route: 065
     Dates: start: 20110606
  21. SIGMART [Concomitant]
     Route: 065
     Dates: start: 20110610

REACTIONS (6)
  - RENAL IMPAIRMENT [None]
  - MYELODYSPLASTIC SYNDROME [None]
  - RASH GENERALISED [None]
  - WHITE BLOOD CELL COUNT DECREASED [None]
  - INFECTION [None]
  - SKIN ULCER [None]
